FAERS Safety Report 4960573-7 (Version None)
Quarter: 2006Q2

REPORT INFORMATION
  Report Type: 
  Country: None (occurrence: None)
  Receive Date: 20060403
  Receipt Date: 20030805
  Transmission Date: 20061013
  Serious: Yes (Other)
  Sender: FDA-Public Use
  Company Number: 200317722GDDC

PATIENT
  Age: 76 Year
  Sex: Female
  Weight: 50 kg

DRUGS (14)
  1. UNFRACTIONATED HEPARIN [Suspect]
     Indication: MYOCARDIAL INFARCTION
     Dosage: DOSE: ENOX/PLACEBO BOLUS NOT GIVEN
  2. UNFRACTIONATED HEPARIN [Suspect]
     Dosage: DOSE: HEPARIN/PLACEBO BOLUS NOT GIVEN
  3. UNFRACTIONATED HEPARIN [Suspect]
     Dosage: DOSE: ENOX/PLACEBO SC 76 MG
     Route: 058
     Dates: start: 20030611, end: 20030612
  4. UNFRACTIONATED HEPARIN [Suspect]
     Dosage: DOSE: HEPARIN/PLACEBO IV 600 UNITS; FREQUENCY: CONTINUOUS
     Route: 041
     Dates: start: 20030611, end: 20030612
  5. ASPIRIN [Suspect]
     Indication: MYOCARDIAL INFARCTION
     Route: 048
     Dates: start: 20030611, end: 20030613
  6. ASPIRIN [Suspect]
     Route: 048
     Dates: start: 20030614
  7. STREPTASE [Suspect]
     Indication: MYOCARDIAL INFARCTION
     Route: 041
     Dates: start: 20030611, end: 20030611
  8. PLAVIX [Suspect]
     Indication: PLATELET AGGREGATION
     Route: 048
     Dates: start: 20030611, end: 20030614
  9. DERALIN [Concomitant]
     Indication: ISCHAEMIA
     Route: 048
     Dates: start: 20030611
  10. CAPOTEN [Concomitant]
     Route: 048
     Dates: start: 20030611
  11. GASTRO [Concomitant]
     Indication: PROPHYLAXIS
     Route: 048
     Dates: start: 20030614
  12. GASTRO [Concomitant]
     Indication: ULCER
     Route: 048
     Dates: start: 20030614
  13. SLOW-K [Concomitant]
     Route: 048
     Dates: start: 20030612
  14. RULID [Concomitant]
     Indication: PNEUMONIA
     Route: 048
     Dates: start: 20030614

REACTIONS (9)
  - ASTHENIA [None]
  - DIZZINESS [None]
  - HAEMATOCRIT DECREASED [None]
  - HAEMOGLOBIN DECREASED [None]
  - INTERNATIONAL NORMALISED RATIO DECREASED [None]
  - PLATELET COUNT DECREASED [None]
  - PNEUMONIA [None]
  - PULMONARY CONGESTION [None]
  - RED BLOOD CELL COUNT DECREASED [None]
